FAERS Safety Report 6650329-1 (Version None)
Quarter: 2010Q1

REPORT INFORMATION
  Report Type: 
  Country: None (occurrence: None)
  Receive Date: 20100325
  Receipt Date: 20100318
  Transmission Date: 20100710
  Serious: Yes (Hospitalization)
  Sender: FDA-Public Use
  Company Number: PHHO2009TR09975

PATIENT
  Sex: Male
  Weight: 98 kg

DRUGS (2)
  1. ACZ885 ACZ+ [Suspect]
     Indication: GOUT
     Dosage: 200 MG, ONCE/SINGLE
     Dates: start: 20090714, end: 20090730
  2. ALLOPURINOL [Concomitant]

REACTIONS (4)
  - CONCOMITANT DISEASE PROGRESSION [None]
  - HAEMATURIA [None]
  - NEPHROTIC SYNDROME [None]
  - RENAL FAILURE ACUTE [None]
